FAERS Safety Report 14475515 (Version 1)
Quarter: 2018Q1

REPORT INFORMATION
  Report Type: Spontaneous
  Country: US (occurrence: US)
  Receive Date: 20180131
  Receipt Date: 20180131
  Transmission Date: 20180509
  Serious: Yes (Disabling, Other)
  Sender: FDA-Public Use
  Company Number: None

PATIENT
  Age: 57 Year
  Sex: Male
  Weight: 155.25 kg

DRUGS (4)
  1. HUMALOG R [Concomitant]
  2. VICTOZA [Suspect]
     Active Substance: LIRAGLUTIDE
     Indication: DIABETES MELLITUS
     Route: 058
     Dates: start: 20171211, end: 20180129
  3. METFORMIN [Concomitant]
     Active Substance: METFORMIN HYDROCHLORIDE
  4. CENTRUM [Concomitant]
     Active Substance: VITAMINS

REACTIONS (11)
  - Fatigue [None]
  - Ageusia [None]
  - Injection site discolouration [None]
  - Derealisation [None]
  - Vomiting [None]
  - Bedridden [None]
  - Decreased appetite [None]
  - Asthenia [None]
  - Depression [None]
  - Diarrhoea [None]
  - Drug ineffective [None]
